FAERS Safety Report 25393010 (Version 1)
Quarter: 2025Q2

REPORT INFORMATION
  Report Type: Report from Study
  Country: GR (occurrence: GR)
  Receive Date: 20250604
  Receipt Date: 20250604
  Transmission Date: 20250716
  Serious: Yes (Hospitalization, Other)
  Sender: TAKEDA
  Company Number: GR-TAKEDA-2016BLT005910

PATIENT
  Age: 46 Year
  Sex: Female
  Weight: 150 kg

DRUGS (10)
  1. HUMAN IMMUNOGLOBULIN G\HYALURONIDASE RECOMBINANT HUMAN [Suspect]
     Active Substance: HUMAN IMMUNOGLOBULIN G\HYALURONIDASE (HUMAN RECOMBINANT)
     Indication: Immunodeficiency
     Dates: start: 20160630, end: 20160630
  2. HUMAN IMMUNOGLOBULIN G\HYALURONIDASE RECOMBINANT HUMAN [Suspect]
     Active Substance: HUMAN IMMUNOGLOBULIN G\HYALURONIDASE (HUMAN RECOMBINANT)
     Dates: start: 20160607, end: 20160607
  3. HUMAN IMMUNOGLOBULIN G\HYALURONIDASE RECOMBINANT HUMAN [Suspect]
     Active Substance: HUMAN IMMUNOGLOBULIN G\HYALURONIDASE (HUMAN RECOMBINANT)
     Dates: start: 20160810, end: 20160810
  4. HUMAN IMMUNOGLOBULIN G\HYALURONIDASE RECOMBINANT HUMAN [Suspect]
     Active Substance: HUMAN IMMUNOGLOBULIN G\HYALURONIDASE (HUMAN RECOMBINANT)
     Dosage: 200 MILLILITER, 2/MONTH
  5. HUMAN IMMUNOGLOBULIN G\HYALURONIDASE RECOMBINANT HUMAN [Suspect]
     Active Substance: HUMAN IMMUNOGLOBULIN G\HYALURONIDASE (HUMAN RECOMBINANT)
     Dosage: 400 MILLILITER, 2/MONTH
  6. PRADAXA [Concomitant]
     Active Substance: DABIGATRAN ETEXILATE MESYLATE
  7. BISOPROLOL FUMARATE [Concomitant]
     Active Substance: BISOPROLOL FUMARATE
  8. FLECAINIDE ACETATE [Concomitant]
     Active Substance: FLECAINIDE ACETATE
     Dosage: 2 DOSAGE FORM, QD
  9. DAPAGLIFLOZIN [Concomitant]
     Active Substance: DAPAGLIFLOZIN
  10. RAMIPRIL [Concomitant]
     Active Substance: RAMIPRIL

REACTIONS (11)
  - Respiratory tract infection [Unknown]
  - Lymphoma [Unknown]
  - Lymphadenopathy [Unknown]
  - Dyspnoea [Not Recovered/Not Resolved]
  - Oxygen saturation decreased [Unknown]
  - Discomfort [Recovered/Resolved]
  - Dizziness [Recovered/Resolved]
  - Headache [Not Recovered/Not Resolved]
  - COVID-19 [Unknown]
  - Overweight [Unknown]
  - Heart rate increased [Not Recovered/Not Resolved]

NARRATIVE: CASE EVENT DATE: 20160810
